FAERS Safety Report 5146219-6 (Version None)
Quarter: 2006Q4

REPORT INFORMATION
  Report Type: 
  Country: None (occurrence: None)
  Receive Date: 20061108
  Receipt Date: 20061026
  Transmission Date: 20070319
  Serious: Yes (Death, Life-Threatening, Other)
  Sender: FDA-Public Use
  Company Number: FR-BRISTOL-MYERS SQUIBB COMPANY-13567045

PATIENT
  Age: 32 Year
  Sex: Male
  Weight: 54 kg

DRUGS (4)
  1. ENDOXAN [Suspect]
     Indication: TESTICULAR CHORIOCARCINOMA
     Route: 042
     Dates: start: 20060829
  2. ADRIBLASTINE [Suspect]
     Indication: TESTICULAR CHORIOCARCINOMA
     Route: 042
     Dates: start: 20060829
  3. ETOPOSIDE TEVA [Suspect]
     Indication: TESTICULAR CHORIOCARCINOMA
     Route: 042
     Dates: start: 20060829
  4. LENOGRASTIM [Suspect]
     Indication: TESTICULAR CHORIOCARCINOMA
     Route: 048
     Dates: start: 20060831, end: 20060907

REACTIONS (17)
  - ACUTE RESPIRATORY DISTRESS SYNDROME [None]
  - ANXIETY [None]
  - BACTERIAL INFECTION [None]
  - BRADYCARDIA [None]
  - BRAIN OEDEMA [None]
  - CEREBRAL ISCHAEMIA [None]
  - DEATH [None]
  - ENTEROCOCCAL INFECTION [None]
  - ESCHERICHIA INFECTION [None]
  - HYPOKALAEMIA [None]
  - HYPOXIA [None]
  - INTERSTITIAL LUNG DISEASE [None]
  - PYREXIA [None]
  - RESPIRATORY DISTRESS [None]
  - TACHYCARDIA [None]
  - TACHYPNOEA [None]
  - THROMBOCYTOPENIA [None]
